FAERS Safety Report 9386926 (Version 1)
Quarter: 2013Q3

REPORT INFORMATION
  Report Type: Spontaneous
  Country: US (occurrence: None)
  Receive Date: 20130703
  Receipt Date: 20130703
  Transmission Date: 20140515
  Serious: Yes (Other)
  Sender: FDA-Public Use
  Company Number: None

PATIENT
  Age: 83 Year
  Sex: Male
  Weight: 68.04 kg

DRUGS (8)
  1. ATORVASTATIN [Suspect]
     Indication: CARDIAC DISORDER
     Route: 048
     Dates: start: 20130222, end: 20130224
  2. BRIMONIDINE [Concomitant]
  3. DORZOLAMIDE [Concomitant]
  4. GLIMEPRIDE [Concomitant]
  5. AMLODIPINE [Concomitant]
  6. CLOPIDOGREL [Concomitant]
  7. OSOSORBIDE MN [Concomitant]
  8. CARYEDILOL [Concomitant]

REACTIONS (1)
  - Hypersomnia [None]
